FAERS Safety Report 6210365-6 (Version None)
Quarter: 2009Q2

REPORT INFORMATION
  Report Type: 
  Country: None (occurrence: None)
  Receive Date: 20090527
  Receipt Date: 20090512
  Transmission Date: 20091009
  Serious: Yes (Disabling)
  Sender: FDA-Public Use
  Company Number: 1-18446676

PATIENT
  Sex: Female

DRUGS (1)
  1. ACETAZOLAMIDE [Suspect]
     Indication: BENIGN INTRACRANIAL HYPERTENSION
     Dosage: 250 MG, 4 TIMES DAILY, ORAL
     Route: 048
     Dates: start: 20070601

REACTIONS (7)
  - BURNING SENSATION [None]
  - DYSGEUSIA [None]
  - ECONOMIC PROBLEM [None]
  - PARAESTHESIA [None]
  - PREGNANCY [None]
  - PRODUCT SUBSTITUTION ISSUE [None]
  - TOOTH FRACTURE [None]
